FAERS Safety Report 23681243 (Version 3)
Quarter: 2024Q2

REPORT INFORMATION
  Report Type: Spontaneous
  Country: US (occurrence: US)
  Receive Date: 20240328
  Receipt Date: 20240519
  Transmission Date: 20240716
  Serious: No
  Sender: FDA-Public Use
  Company Number: US-GSKCCFUS-Case-01966475_AE-109303

PATIENT
  Age: 39 Year
  Sex: Female

DRUGS (1)
  1. TRELEGY ELLIPTA [Suspect]
     Active Substance: FLUTICASONE FUROATE\UMECLIDINIUM BROMIDE\VILANTEROL TRIFENATATE
     Indication: Product used for unknown indication
     Dosage: 1 MG, QD 100/62.5/25 MCG
     Route: 055

REACTIONS (2)
  - Dyspnoea [Unknown]
  - Product complaint [Unknown]

NARRATIVE: CASE EVENT DATE: 20240317
